FAERS Safety Report 6987621-7 (Version None)
Quarter: 2010Q3

REPORT INFORMATION
  Report Type: 
  Country: None (occurrence: None)
  Receive Date: 20100916
  Receipt Date: 20100907
  Transmission Date: 20110219
  Serious: Yes (Other)
  Sender: FDA-Public Use
  Company Number: IN-ASTRAZENECA-2010SE41919

PATIENT
  Age: 60 Year
  Sex: Female

DRUGS (1)
  1. GEFITINIB [Suspect]
     Indication: GALLBLADDER CANCER
     Route: 048

REACTIONS (1)
  - VENA CAVA THROMBOSIS [None]
